FAERS Safety Report 17367075 (Version 1)
Quarter: 2020Q1

REPORT INFORMATION
  Report Type: Spontaneous
  Country: BR (occurrence: BR)
  Receive Date: 20200204
  Receipt Date: 20200204
  Transmission Date: 20200409
  Serious: Yes (Other)
  Sender: FDA-Public Use
  Company Number: BR-JNJFOC-20200142784

PATIENT
  Age: 16 Year
  Sex: Female
  Weight: 45 kg

DRUGS (2)
  1. TOPAMAX [Suspect]
     Active Substance: TOPIRAMATE
     Dosage: 25 MG
     Route: 048
  2. TOPAMAX [Suspect]
     Active Substance: TOPIRAMATE
     Indication: PRODUCT USED FOR UNKNOWN INDICATION
     Route: 048

REACTIONS (8)
  - Tremor [Unknown]
  - Intentional overdose [Unknown]
  - Hallucination [Unknown]
  - Vomiting [Unknown]
  - Abdominal pain [Unknown]
  - Hypersomnia [Unknown]
  - Confusional state [Unknown]
  - Speech disorder [Unknown]

NARRATIVE: CASE EVENT DATE: 20200122
